FAERS Safety Report 24907693 (Version 1)
Quarter: 2025Q1

REPORT INFORMATION
  Report Type: Spontaneous
  Country: CA (occurrence: CA)
  Receive Date: 20250131
  Receipt Date: 20250131
  Transmission Date: 20250408
  Serious: Yes (Other)
  Sender: NOVO NORDISK
  Company Number: CA-NOVOPROD-1355302

PATIENT
  Age: 8 Year

DRUGS (1)
  1. NORDITROPIN [Suspect]
     Active Substance: SOMATROPIN
     Indication: Product used for unknown indication
     Dates: start: 20241113, end: 20241226

REACTIONS (2)
  - Papilloedema [Unknown]
  - Vomiting [Unknown]

NARRATIVE: CASE EVENT DATE: 20241223
